FAERS Safety Report 19771138 (Version 1)
Quarter: 2021Q3

REPORT INFORMATION
  Report Type: Spontaneous
  Country: CA (occurrence: CA)
  Receive Date: 20210901
  Receipt Date: 20210901
  Transmission Date: 20211014
  Serious: Yes (Other)
  Sender: FDA-Public Use
  Company Number: CA-ACCORD-236671

PATIENT
  Age: 54 Year
  Sex: Male

DRUGS (2)
  1. METHOTREXATE. [Suspect]
     Active Substance: METHOTREXATE
     Indication: PRODUCT USED FOR UNKNOWN INDICATION
     Dosage: 1 EVERY 1 WEEKS
     Route: 048
  2. XELJANZ [Suspect]
     Active Substance: TOFACITINIB CITRATE
     Indication: PSORIATIC ARTHROPATHY
     Dosage: 2 EVERY 1 DAYS
     Route: 048

REACTIONS (4)
  - Dry skin [Not Recovered/Not Resolved]
  - Immunosuppression [Not Recovered/Not Resolved]
  - Acne cystic [Not Recovered/Not Resolved]
  - Pain [Not Recovered/Not Resolved]
